FAERS Safety Report 14577135 (Version 1)
Quarter: 2018Q1

REPORT INFORMATION
  Report Type: Spontaneous
  Country: JP (occurrence: JP)
  Receive Date: 20180227
  Receipt Date: 20180227
  Transmission Date: 20180509
  Serious: Yes (Hospitalization)
  Sender: FDA-Public Use
  Company Number: JP-NOVAST LABORATORIES, LTD-JP-2018NOV000110

PATIENT
  Age: 70 Year
  Sex: Male

DRUGS (1)
  1. CARISOPRODOL\ASPIRIN [Suspect]
     Active Substance: ASPIRIN\CARISOPRODOL
     Indication: CARDIOVASCULAR EVENT PROPHYLAXIS
     Dosage: UNK

REACTIONS (1)
  - Post procedural haemorrhage [Unknown]
